FAERS Safety Report 10237445 (Version 1)
Quarter: 2014Q2

REPORT INFORMATION
  Report Type: Report from Study
  Country: US (occurrence: US)
  Receive Date: 20140615
  Receipt Date: 20140615
  Transmission Date: 20141212
  Serious: Yes (Other)
  Sender: FDA-Public Use
  Company Number: PHEH2014US011872

PATIENT
  Sex: Female

DRUGS (2)
  1. NEORAL [Suspect]
     Indication: RENAL TRANSPLANT
     Dosage: 100 MG, BID
     Route: 048
  2. NEORAL [Suspect]
     Indication: PANCREAS TRANSPLANT
     Dosage: 25 MG, (4 CAPSULE EVENRY 12 HOURS )
     Route: 048

REACTIONS (1)
  - Cerebrovascular accident [Unknown]
